FAERS Safety Report 7676233-8 (Version None)
Quarter: 2011Q3

REPORT INFORMATION
  Report Type: 
  Country: None (occurrence: None)
  Receive Date: 20110811
  Receipt Date: 20110802
  Transmission Date: 20111222
  Serious: Yes (Other)
  Sender: FDA-Public Use
  Company Number: US-BAYER-201038503NA

PATIENT
  Age: 33 Year
  Sex: Female
  Weight: 54 kg

DRUGS (13)
  1. ACIPHEX [Concomitant]
     Indication: GALLBLADDER DISORDER
  2. MULTI-VITAMINS [Concomitant]
     Dosage: UNK UNK, QD
  3. TOPAMAX [Concomitant]
     Dosage: 50 MG, QD
  4. YAZ [Suspect]
     Dosage: UNK UNK, UNK
     Route: 048
     Dates: start: 20050101, end: 20051212
  5. LEXAPRO [Concomitant]
     Indication: ANXIETY
     Dosage: 20 MG, QD
  6. LEXAPRO [Concomitant]
     Indication: DEPRESSION
  7. ACIPHEX [Concomitant]
     Indication: DYSPEPSIA
     Dosage: UNK
     Dates: start: 20090801, end: 20100901
  8. YASMIN [Suspect]
     Dosage: UNK UNK, UNK
     Route: 048
     Dates: start: 19940101, end: 19990101
  9. FLAXSEED OIL [Concomitant]
     Dosage: UNK UNK, QD
  10. FISH OIL [Concomitant]
     Dosage: UNK UNK, QD
  11. CLARITEN [Concomitant]
     Dosage: UNK UNK, QD
  12. YAZ [Suspect]
     Dosage: UNK
     Dates: start: 20081021, end: 20090801
  13. CLONAZEPAM [Concomitant]

REACTIONS (5)
  - BILIARY COLIC [None]
  - CHOLECYSTITIS CHRONIC [None]
  - ABDOMINAL PAIN UPPER [None]
  - NAUSEA [None]
  - DIARRHOEA [None]
